FAERS Safety Report 8492665-2 (Version None)
Quarter: 2012Q3

REPORT INFORMATION
  Report Type: 
  Country: None (occurrence: None)
  Receive Date: 20120706
  Receipt Date: 20120625
  Transmission Date: 20120928
  Serious: Yes (Hospitalization)
  Sender: FDA-Public Use
  Company Number: GB-CELGENEUS-167-CCAZA-11091445

PATIENT
  Sex: Female
  Weight: 69.3 kg

DRUGS (39)
  1. AZACITIDINE [Suspect]
     Dosage: 75 MILLIGRAM/SQ. METER
     Route: 058
     Dates: start: 20111005, end: 20111011
  2. ADCAL D3 [Concomitant]
     Indication: HYPERCALCAEMIA
     Dosage: 2 MILLIGRAM
     Route: 065
     Dates: start: 20060607
  3. AMITRIPTYLINE HCL [Concomitant]
     Indication: DEPRESSION
     Dosage: 75 MILLIGRAM
     Route: 065
     Dates: start: 20060830
  4. SODIUM ALGINATE [Concomitant]
     Indication: ANTACID THERAPY
     Dosage: 10-20ML 4 TIMES DAILY
     Route: 065
     Dates: start: 20071118
  5. SODIUM CHLORIDE [Concomitant]
     Dosage: 2000 MILLILITER
     Route: 065
     Dates: start: 20120208, end: 20120208
  6. ZARZIO [Concomitant]
     Indication: NEUTROPENIA
     Dosage: 480 MILLIGRAM
     Route: 065
     Dates: start: 20120209, end: 20120212
  7. AUGMENTIN '125' [Concomitant]
     Dosage: 1875 MILLIGRAM
     Route: 065
     Dates: start: 20110926
  8. SODIUM CHLORIDE [Concomitant]
     Indication: NEUTROPENIC SEPSIS
     Dosage: 1000 MILLILITER
     Route: 065
     Dates: start: 20120206, end: 20120207
  9. DIFFLAM [Concomitant]
     Dosage: 20 MILLILITER
     Route: 065
     Dates: start: 20110921
  10. SIMVASTATIN [Concomitant]
     Route: 065
     Dates: start: 20110814
  11. CIPROFLOXACIN [Concomitant]
     Dosage: 1500 MILLIGRAM
     Route: 065
     Dates: start: 20110718
  12. FLUCONAZOLE [Concomitant]
     Indication: ANTIFUNGAL PROPHYLAXIS
     Dosage: 400 MILLIGRAM
     Route: 065
     Dates: start: 20110718
  13. ALBUTEROL SULATE [Concomitant]
     Route: 065
  14. ORAMORPH SR [Concomitant]
     Indication: ABDOMINAL PAIN
     Dosage: 5-10MG
     Route: 065
     Dates: start: 20110826
  15. LACTULOSE [Concomitant]
     Indication: CONSTIPATION
     Dosage: 5-10ML AS NEEDED
     Route: 065
     Dates: start: 20060815, end: 20110912
  16. RAMIPRIL [Concomitant]
     Indication: HYPERTENSION
     Dosage: 1.25 MILLIGRAM
     Route: 065
     Dates: start: 20091130
  17. ACYCLOVIR [Concomitant]
     Dosage: 800 MILLIGRAM
     Route: 065
     Dates: start: 20110805
  18. CIPROFLOXACIN [Concomitant]
     Indication: ANTIBIOTIC PROPHYLAXIS
     Dosage: 500 MILLIGRAM
     Route: 065
     Dates: start: 20110718
  19. CANDESARTAN [Concomitant]
     Route: 065
     Dates: end: 20110828
  20. SODIUM PICOSULFATE [Concomitant]
     Indication: CONSTIPATION
     Dosage: 4 GRAM
     Route: 065
     Dates: start: 20110202
  21. CIPROFLOXACIN [Concomitant]
     Dosage: 1500 MILLIGRAM
     Route: 065
     Dates: start: 20110805, end: 20110922
  22. SALMETEROL XINAFOATE [Concomitant]
     Dosage: 2 DOSAGE FORMS
     Route: 055
     Dates: start: 20110127
  23. QVAR 40 [Concomitant]
     Dosage: 400 MICROGRAM
     Route: 065
     Dates: start: 20110114
  24. ALBUTEROL SULATE [Concomitant]
     Dosage: 400 MICROGRAM
     Route: 055
     Dates: start: 20101116
  25. AZACITIDINE [Suspect]
     Dosage: 75 MILLIGRAM/SQ. METER
     Route: 058
     Dates: start: 20110908, end: 20110914
  26. ASPIRIN [Concomitant]
     Indication: ANTIPLATELET THERAPY
     Dosage: 75 MILLIGRAM
     Route: 065
     Dates: start: 20080721
  27. FLUCONAZOLE [Concomitant]
     Dosage: 400 MILLIGRAM
     Route: 065
     Dates: start: 20110805
  28. FLUTICASONE PROPIONATE [Concomitant]
     Dosage: 2 DOSAGE FORMS
     Route: 055
     Dates: start: 20080815
  29. CLOTRIMAZOLE [Concomitant]
     Dosage: 5 GRAM
     Route: 065
     Dates: start: 20110908
  30. ACETAMINOPHEN AND CODEINE PHOSPHATE [Concomitant]
     Dosage: 1 (15/500MG) TO 2 (30/1000MG) AS NEEDED
     Route: 065
     Dates: start: 20090513, end: 20110912
  31. FYBROGEL [Concomitant]
     Indication: CONSTIPATION
     Route: 065
     Dates: start: 20110330, end: 20110912
  32. OMEPRAZOLE [Concomitant]
     Dosage: 20 MILLIGRAM
     Route: 065
     Dates: start: 20100824, end: 20110912
  33. NORMAL SALINE WITH MAGNESIUM SULPHATE 20MMOLS [Concomitant]
     Indication: NEUTROPENIC SEPSIS
     Dosage: 1000 MILLILITER
     Route: 065
     Dates: start: 20120207, end: 20120207
  34. BUSCOPAN BUTYLBROMIDE [Concomitant]
     Indication: ABDOMINAL PAIN
     Dosage: 10-20MG
     Route: 065
     Dates: start: 20110831
  35. ACYCLOVIR [Concomitant]
     Indication: ANTIVIRAL PROPHYLAXIS
     Dosage: 800 MILLIGRAM
     Route: 065
     Dates: start: 20110718
  36. ORAMORPH SR [Concomitant]
     Route: 065
     Dates: start: 20110911
  37. PREGABALIN [Concomitant]
     Indication: SCIATICA
     Route: 065
  38. FLUDROCORTISONE ACETATE [Concomitant]
     Indication: HYPOTENSION
     Route: 065
     Dates: start: 20110526
  39. CYCLIZINE [Concomitant]
     Indication: NAUSEA
     Route: 065
     Dates: start: 20110910

REACTIONS (3)
  - TOOTH INFECTION [None]
  - DEEP VEIN THROMBOSIS [None]
  - CELLULITIS [None]
